FAERS Safety Report 10297189 (Version 1)
Quarter: 2014Q3

REPORT INFORMATION
  Report Type: Spontaneous
  Country: US (occurrence: US)
  Receive Date: 20140711
  Receipt Date: 20140711
  Transmission Date: 20150326
  Serious: No
  Sender: FDA-Public Use
  Company Number: US-BIOGENIDEC-2014BI061475

PATIENT
  Age: 34 Year
  Sex: Male

DRUGS (10)
  1. AVONEX [Concomitant]
     Active Substance: INTERFERON BETA-1A
     Indication: MULTIPLE SCLEROSIS
     Route: 030
  2. VITAMIN B12 [Concomitant]
     Active Substance: CYANOCOBALAMIN
  3. AVONEX [Concomitant]
     Active Substance: INTERFERON BETA-1A
     Indication: MULTIPLE SCLEROSIS
     Route: 030
     Dates: start: 20070526, end: 20130610
  4. XANAX [Concomitant]
     Active Substance: ALPRAZOLAM
  5. TECFIDERA [Suspect]
     Active Substance: DIMETHYL FUMARATE
     Indication: MULTIPLE SCLEROSIS
     Route: 048
  6. FLECTOR [Concomitant]
     Active Substance: DICLOFENAC EPOLAMINE
  7. TYLENOL [Concomitant]
     Active Substance: ACETAMINOPHEN
  8. TECFIDERA [Suspect]
     Active Substance: DIMETHYL FUMARATE
     Indication: MULTIPLE SCLEROSIS
  9. TECFIDERA [Suspect]
     Active Substance: DIMETHYL FUMARATE
     Indication: MULTIPLE SCLEROSIS
  10. MOBIC [Concomitant]
     Active Substance: MELOXICAM
     Dates: start: 20140102

REACTIONS (5)
  - Paraesthesia [Unknown]
  - Hypoaesthesia [Unknown]
  - Flushing [Unknown]
  - Discomfort [Unknown]
  - Prescribed underdose [Recovered/Resolved]
